FAERS Safety Report 8618460-9 (Version None)
Quarter: 2012Q3

REPORT INFORMATION
  Report Type: 
  Country: None (occurrence: None)
  Receive Date: 20120810
  Receipt Date: 20120810
  Transmission Date: 20120928
  Serious: Yes (Other)
  Sender: FDA-Public Use
  Company Number: None

PATIENT
  Sex: Male

DRUGS (1)
  1. RITUXAN [Suspect]
     Indication: ACUTE MYELOID LEUKAEMIA
     Dosage: IV
     Route: 042

REACTIONS (2)
  - NAUSEA [None]
  - CHEST PAIN [None]
